FAERS Safety Report 6768913-3 (Version None)
Quarter: 2010Q2

REPORT INFORMATION
  Report Type: 
  Country: None (occurrence: None)
  Receive Date: 20100614
  Receipt Date: 20100611
  Transmission Date: 20101027
  Serious: Yes (Other)
  Sender: FDA-Public Use
  Company Number: US-BRISTOL-MYERS SQUIBB COMPANY-14748974

PATIENT
  Age: 61 Year
  Sex: Male

DRUGS (5)
  1. ORENCIA [Suspect]
     Indication: RHEUMATOID ARTHRITIS
     Dosage: NO OF INF-17.
     Route: 042
     Dates: start: 20080521
  2. CELEBREX [Concomitant]
     Dates: start: 20090727
  3. NEXIUM [Concomitant]
     Dates: start: 20040805
  4. PREDNISONE [Concomitant]
     Dosage: TAKEN AS DIR
     Dates: start: 20090624
  5. PROSCAR [Concomitant]

REACTIONS (1)
  - RHABDOMYOLYSIS [None]
